FAERS Safety Report 22531860 (Version 1)
Quarter: 2023Q2

REPORT INFORMATION
  Report Type: Spontaneous
  Country: US (occurrence: None)
  Receive Date: 20230606
  Receipt Date: 20230606
  Transmission Date: 20230722
  Serious: Yes (Death)
  Sender: FDA-Public Use
  Company Number: None

PATIENT
  Age: 69 Year
  Sex: Female

DRUGS (20)
  1. DEFERASIROX ORAL [Suspect]
     Active Substance: DEFERASIROX
     Indication: Kaposi^s sarcoma
     Dosage: FREQUENCY : DAILY; ORALLY IN 4-6 OZ WATER/JUICE?
     Route: 048
  2. CALCIUM [Concomitant]
     Active Substance: CALCIUM
  3. CLARITIN [Concomitant]
     Active Substance: LORATADINE
  4. VITAMIN B12 [Concomitant]
     Active Substance: CYANOCOBALAMIN
  5. CYCLOBENZAPRINE [Concomitant]
     Active Substance: CYCLOBENZAPRINE
  6. FISH OIL [Concomitant]
     Active Substance: FISH OIL
  7. CYCLOSPORINE [Concomitant]
     Active Substance: CYCLOSPORINE
  8. HYOSCAMINE [Concomitant]
  9. LASIX [Concomitant]
     Active Substance: FUROSEMIDE
  10. METOPROLOL [Concomitant]
     Active Substance: METOPROLOL
  11. MIRALAX [Concomitant]
     Active Substance: POLYETHYLENE GLYCOL 3350
  12. PROTONIX [Concomitant]
     Active Substance: PANTOPRAZOLE SODIUM
  13. PLAQUENIL [Concomitant]
     Active Substance: HYDROXYCHLOROQUINE SULFATE
  14. POTASSIUM CHLORIDE [Concomitant]
     Active Substance: POTASSIUM CHLORIDE
  15. PREDNISONE [Concomitant]
     Active Substance: PREDNISONE
  16. PROLIA [Concomitant]
     Active Substance: DENOSUMAB
  17. PROMACTA [Concomitant]
     Active Substance: ELTROMBOPAG OLAMINE
  18. PROVENTIL [Concomitant]
     Active Substance: ALBUTEROL
  19. STIOLTO RESPIMAT [Concomitant]
     Active Substance: OLODATEROL HYDROCHLORIDE\TIOTROPIUM BROMIDE MONOHYDRATE
  20. TYLENOL [Concomitant]

REACTIONS (1)
  - Death [None]

NARRATIVE: CASE EVENT DATE: 20230428
